FAERS Safety Report 5302150-4 (Version None)
Quarter: 2007Q2

REPORT INFORMATION
  Report Type: 
  Country: None (occurrence: None)
  Receive Date: 20070419
  Receipt Date: 20070412
  Transmission Date: 20071010
  Serious: Yes (Hospitalization, Other)
  Sender: FDA-Public Use
  Company Number: JP-PFIZER INC-2007025575

PATIENT
  Sex: Male

DRUGS (5)
  1. ZOLOFT [Suspect]
     Indication: MAJOR DEPRESSION
     Route: 048
     Dates: start: 20061023, end: 20070308
  2. TERNELIN [Suspect]
     Dosage: TEXT:UNKNOWN
     Route: 048
  3. EURODIN [Suspect]
     Indication: INSOMNIA
     Route: 048
     Dates: start: 20070305, end: 20070308
  4. ROHYPNOL [Concomitant]
     Route: 048
     Dates: start: 20060421, end: 20070308
  5. DESYREL [Concomitant]
     Route: 048
     Dates: start: 20060404, end: 20070308

REACTIONS (6)
  - ASTHENIA [None]
  - CONVULSION [None]
  - DEPRESSED LEVEL OF CONSCIOUSNESS [None]
  - EMOTIONAL DISTRESS [None]
  - HEPATIC FUNCTION ABNORMAL [None]
  - MUSCLE SPASMS [None]
